FAERS Safety Report 4541018-8 (Version None)
Quarter: 2004Q4

REPORT INFORMATION
  Report Type: 
  Country: None (occurrence: None)
  Receive Date: 20041228
  Receipt Date: 20041221
  Transmission Date: 20050328
  Serious: Yes (Hospitalization)
  Sender: FDA-Public Use
  Company Number: 25873

PATIENT
  Age: 83 Year
  Sex: Female

DRUGS (8)
  1. TAMBOCOR [Suspect]
     Indication: ATRIAL FIBRILLATION
     Dosage: 100MG, 2 IN 1 DAY(S), ORAL
     Route: 048
     Dates: start: 20041201, end: 20041220
  2. SYNTHROID [Concomitant]
  3. ASPIRIN [Concomitant]
  4. TIMOLOL MALEATE [Concomitant]
  5. PILOCARPINE [Concomitant]
  6. AMBIEN [Concomitant]
  7. REGLAN [Concomitant]
  8. MULTI-VITAMIN [Concomitant]

REACTIONS (5)
  - BLOOD MAGNESIUM DECREASED [None]
  - DIZZINESS [None]
  - DRUG LEVEL ABOVE THERAPEUTIC [None]
  - FATIGUE [None]
  - VENTRICULAR TACHYCARDIA [None]
